FAERS Safety Report 22128949 (Version 1)
Quarter: 2023Q1

REPORT INFORMATION
  Report Type: Spontaneous
  Country: CA (occurrence: CA)
  Receive Date: 20230323
  Receipt Date: 20230323
  Transmission Date: 20230418
  Serious: Yes (Other)
  Sender: FDA-Public Use
  Company Number: CA-CELLTRION INC.-2023CA005980

PATIENT

DRUGS (4)
  1. INFLIXIMAB [Suspect]
     Active Substance: INFLIXIMAB
     Indication: Crohn^s disease
     Dosage: 400 MG (1 EVERY 4 WEEKS)
     Route: 065
  2. INFLIXIMAB [Suspect]
     Active Substance: INFLIXIMAB
     Indication: Crohn^s disease
     Dosage: (1 EVERY 6 WEEKS)
     Route: 065
  3. REMICADE [Suspect]
     Active Substance: INFLIXIMAB
     Indication: Crohn^s disease
     Route: 041
  4. PREDNISONE [Concomitant]
     Active Substance: PREDNISONE
     Dosage: 40 MG, DAILY

REACTIONS (5)
  - Off label use [Unknown]
  - Intentional product use issue [Unknown]
  - Condition aggravated [Unknown]
  - Drug level decreased [Unknown]
  - Faecal calprotectin increased [Unknown]
